FAERS Safety Report 14219273 (Version 1)
Quarter: 2017Q4

REPORT INFORMATION
  Report Type: Spontaneous
  Country: US (occurrence: US)
  Receive Date: 20171123
  Receipt Date: 20171123
  Transmission Date: 20180321
  Serious: No
  Sender: FDA-Public Use
  Company Number: US-JNJFOC-20171031399

PATIENT
  Sex: Male

DRUGS (1)
  1. RISPERIDAL [Suspect]
     Active Substance: RISPERIDONE
     Indication: PRODUCT USED FOR UNKNOWN INDICATION
     Route: 048
     Dates: start: 20051118, end: 20120209

REACTIONS (2)
  - Emotional disorder [Unknown]
  - Gynaecomastia [Unknown]
